FAERS Safety Report 18022340 (Version 1)
Quarter: 2020Q3

REPORT INFORMATION
  Report Type: Other
  Country: US (occurrence: US)
  Receive Date: 20200715
  Receipt Date: 20200715
  Transmission Date: 20201103
  Serious: Yes (Hospitalization, Other)
  Sender: FDA-Public Use
  Company Number: US-ROCHE-2148166

PATIENT
  Age: 83 Year
  Sex: Male
  Weight: 88.53 kg

DRUGS (17)
  1. ESBRIET [Suspect]
     Active Substance: PIRFENIDONE
     Indication: SCLERODERMA
     Route: 048
     Dates: start: 201806
  2. ESBRIET [Suspect]
     Active Substance: PIRFENIDONE
     Indication: CARDIAC FAILURE CONGESTIVE
     Dosage: 7 DOSAGE FORM A DAY
     Route: 048
  3. FLOMAX [Concomitant]
     Active Substance: TAMSULOSIN HYDROCHLORIDE
     Dosage: ONGOING: YES
     Route: 048
  4. TORSEMIDE. [Concomitant]
     Active Substance: TORSEMIDE
     Dosage: ONGOING: YES
     Route: 048
  5. WARFARIN [Concomitant]
     Active Substance: WARFARIN
     Route: 048
  6. ENTRESTO [Concomitant]
     Active Substance: SACUBITRIL\VALSARTAN
     Dosage: 24/26 MG 1 PILL TWICE DAILY BEEN ON FOR 1 MONTH
     Route: 048
  7. ESBRIET [Suspect]
     Active Substance: PIRFENIDONE
     Indication: IDIOPATHIC PULMONARY FIBROSIS
     Dosage: ONGOING: YES
     Route: 048
     Dates: start: 20180611
  8. RAMIPRIL. [Concomitant]
     Active Substance: RAMIPRIL
     Dosage: ONGOING: YES
     Route: 048
     Dates: start: 201805
  9. WARFARIN [Concomitant]
     Active Substance: WARFARIN
     Indication: ANTICOAGULANT THERAPY
     Dosage: ONGOING: YES
     Route: 048
  10. WARFARIN [Concomitant]
     Active Substance: WARFARIN
     Dosage: ONGOING: YES
     Route: 048
  11. WARFARIN [Concomitant]
     Active Substance: WARFARIN
     Route: 048
  12. ESBRIET [Suspect]
     Active Substance: PIRFENIDONE
     Dosage: 3 PILLS 3 TIMES DAILY BEEN ON FOR 4 MONTHS
     Route: 048
     Dates: start: 2018
  13. COREG [Concomitant]
     Active Substance: CARVEDILOL
     Dosage: ONGOING: YES
     Route: 048
  14. FUROSEMID [Concomitant]
     Active Substance: FUROSEMIDE
     Dosage: BEEN ON FOR AWHILE;
     Route: 048
  15. ALLOPURINOL. [Concomitant]
     Active Substance: ALLOPURINOL
     Indication: GOUT
     Route: 048
  16. ESBRIET [Suspect]
     Active Substance: PIRFENIDONE
     Indication: CHRONIC LEFT VENTRICULAR FAILURE
     Dosage: 9 DOSAGE FORM A DAY
     Route: 048
  17. COREG [Concomitant]
     Active Substance: CARVEDILOL
     Dosage: HEART DOCTOR IS EXPERIMENTING WITH DOSING. ;ONGOING: YES
     Route: 048
     Dates: start: 201805

REACTIONS (11)
  - Abdominal discomfort [Recovered/Resolved with Sequelae]
  - Weight decreased [Not Recovered/Not Resolved]
  - Visual impairment [Not Recovered/Not Resolved]
  - Ageusia [Unknown]
  - Decreased appetite [Not Recovered/Not Resolved]
  - Abdominal distension [Unknown]
  - Decreased appetite [Not Recovered/Not Resolved]
  - Asthenia [Not Recovered/Not Resolved]
  - Abdominal distension [Recovered/Resolved with Sequelae]
  - Nausea [Not Recovered/Not Resolved]
  - Ageusia [Not Recovered/Not Resolved]

NARRATIVE: CASE EVENT DATE: 2018
